FAERS Safety Report 25423092 (Version 1)
Quarter: 2025Q2

REPORT INFORMATION
  Report Type: Spontaneous
  Country: US (occurrence: None)
  Receive Date: 20250610
  Receipt Date: 20250610
  Transmission Date: 20250717
  Serious: Yes (Hospitalization)
  Sender: FDA-CTU
  Company Number: None

PATIENT
  Age: 84 Year
  Sex: Male
  Weight: 58 kg

DRUGS (1)
  1. ALTEPLASE [Suspect]
     Active Substance: ALTEPLASE
     Indication: Cerebrovascular accident
     Route: 042
     Dates: start: 20241226, end: 20241226

REACTIONS (4)
  - Gingival bleeding [None]
  - Encephalopathy [None]
  - Cerebrovascular accident [None]
  - Dementia [None]

NARRATIVE: CASE EVENT DATE: 20241227
